FAERS Safety Report 9888323 (Version 2)
Quarter: 2014Q1

REPORT INFORMATION
  Report Type: Spontaneous
  Country: US (occurrence: US)
  Receive Date: 20140211
  Receipt Date: 20140313
  Transmission Date: 20141002
  Serious: No
  Sender: FDA-Public Use
  Company Number: US-PFIZER INC-2014037126

PATIENT
  Age: 89 Year
  Sex: Male
  Weight: 84.81 kg

DRUGS (5)
  1. SUTENT [Suspect]
     Indication: RENAL CELL CARCINOMA
     Dosage: 50 MG, DAILY FOR 28 DAYS
     Route: 048
     Dates: start: 20140109, end: 20140201
  2. ALEVE [Concomitant]
     Dosage: 220 MG, 2X/DAY
     Route: 048
     Dates: start: 201312
  3. ATENOLOL [Concomitant]
     Dosage: 50 MG, DAILY
     Route: 048
  4. HYDROCHLOROTHIAZIDE [Concomitant]
     Dosage: 25 MG, DAILY
     Route: 048
  5. TYLENOL [Concomitant]
     Dosage: 2(500 MG), 2X/DAY
     Route: 048

REACTIONS (17)
  - Stomatitis [Recovered/Resolved]
  - Glossodynia [Recovered/Resolved]
  - Rash erythematous [Recovering/Resolving]
  - Pruritus [Recovering/Resolving]
  - Lacrimation increased [Recovered/Resolved]
  - Disturbance in attention [Recovered/Resolved]
  - Musculoskeletal pain [Recovering/Resolving]
  - Arthralgia [Recovering/Resolving]
  - Pyrexia [Unknown]
  - Chills [Unknown]
  - Night sweats [Unknown]
  - Decreased appetite [Unknown]
  - Ageusia [Unknown]
  - Weight decreased [Unknown]
  - Perivascular dermatitis [Unknown]
  - Normochromic normocytic anaemia [Unknown]
  - Thrombocytopenia [Unknown]
